FAERS Safety Report 21577385 (Version 2)
Quarter: 2022Q4

REPORT INFORMATION
  Report Type: Report from Study
  Country: GB (occurrence: GB)
  Receive Date: 20221110
  Receipt Date: 20221115
  Transmission Date: 20230113
  Serious: Yes (Hospitalization)
  Sender: FDA-Public Use
  Company Number: GB-GLAXOSMITHKLINE-GB2022GSK161798

PATIENT

DRUGS (8)
  1. DOSTARLIMAB [Suspect]
     Active Substance: DOSTARLIMAB
     Indication: Mesothelioma
     Dosage: 500 MG
     Route: 042
     Dates: start: 20220818, end: 20220818
  2. DOSTARLIMAB [Suspect]
     Active Substance: DOSTARLIMAB
     Dosage: 500 MG
     Route: 042
     Dates: start: 20221020, end: 20221020
  3. NIRAPARIB [Suspect]
     Active Substance: NIRAPARIB
     Indication: Mesothelioma
     Dosage: 200 MG
     Route: 048
     Dates: start: 20220818, end: 20221020
  4. BUPRENORPHINE [Concomitant]
     Active Substance: BUPRENORPHINE
     Indication: Pain
     Dosage: 10 MCG/HR
     Route: 062
     Dates: start: 2021
  5. LERCANIDIPINE [Concomitant]
     Active Substance: LERCANIDIPINE
     Indication: Hypertension
     Dosage: 10 MG
     Route: 048
     Dates: start: 2021
  6. METOCLOPRAMIDE [Concomitant]
     Active Substance: METOCLOPRAMIDE
     Indication: Nausea
     Dosage: 10 MG
     Route: 048
     Dates: start: 20221012
  7. GASTRO-RESISTANT OMEPRAZOLE [Concomitant]
     Indication: Drug therapy
     Dosage: 20 MG
     Route: 048
     Dates: start: 2014
  8. TAMSULOSIN [Concomitant]
     Active Substance: TAMSULOSIN
     Indication: Benign prostatic hyperplasia
     Dosage: 400 UG
     Route: 048
     Dates: start: 2021

REACTIONS (1)
  - Dyspnoea [Recovered/Resolved with Sequelae]

NARRATIVE: CASE EVENT DATE: 20221103
